FAERS Safety Report 13655093 (Version 1)
Quarter: 2017Q2

REPORT INFORMATION
  Report Type: Spontaneous
  Country: HR (occurrence: HR)
  Receive Date: 20170615
  Receipt Date: 20170615
  Transmission Date: 20170830
  Serious: Yes (Death)
  Sender: FDA-Public Use
  Company Number: HR-CELGENEUS-HRV-20170601698

PATIENT
  Age: 67 Year
  Sex: Female
  Weight: 46 kg

DRUGS (4)
  1. REVLIMID [Suspect]
     Active Substance: LENALIDOMIDE
     Indication: AMYLOIDOSIS
  2. DEXAMETHASONE. [Concomitant]
     Active Substance: DEXAMETHASONE
     Indication: PRODUCT USED FOR UNKNOWN INDICATION
     Dosage: 1 DOSAGE FORMS
     Route: 048
     Dates: start: 201612, end: 20170303
  3. REVLIMID [Suspect]
     Active Substance: LENALIDOMIDE
     Indication: PLASMA CELL MYELOMA
     Dosage: 25 MILLIGRAM
     Route: 048
     Dates: start: 201612, end: 20170302
  4. DEXAMETHASONE. [Concomitant]
     Active Substance: DEXAMETHASONE
     Route: 065
     Dates: start: 20150210, end: 201510

REACTIONS (4)
  - Chills [Unknown]
  - Respiration abnormal [Unknown]
  - Pyrexia [Unknown]
  - Cardiac failure [Fatal]

NARRATIVE: CASE EVENT DATE: 20170115
